FAERS Safety Report 9779990 (Version 3)
Quarter: 2014Q1

REPORT INFORMATION
  Report Type: Spontaneous
  Country: IT (occurrence: IT)
  Receive Date: 20131223
  Receipt Date: 20140204
  Transmission Date: 20141002
  Serious: Yes (Hospitalization)
  Sender: FDA-Public Use
  Company Number: IT-ACTAVIS-2013-22911

PATIENT
  Age: 70 Year
  Sex: Female

DRUGS (5)
  1. GABAPENTIN (UNKNOWN) [Suspect]
     Indication: SUICIDE ATTEMPT
     Dosage: 14 DF, TOTAL
     Route: 048
     Dates: start: 20131108, end: 20131108
  2. RISEDRONATE SODIUM (UNKNOWN) [Suspect]
     Indication: SUICIDE ATTEMPT
     Dosage: 3 DF, TOTAL
     Route: 048
     Dates: start: 20131108, end: 20131108
  3. ACETAMOL /00020001/ [Suspect]
     Indication: SUICIDE ATTEMPT
     Dosage: 500 MG, 4 DF, TOTAL
     Route: 048
     Dates: start: 20131108, end: 20131108
  4. PALEXIA [Suspect]
     Indication: SUICIDE ATTEMPT
     Dosage: 100 MG, 9 DF, TOTAL
     Route: 048
     Dates: start: 20131108, end: 20131108
  5. PATROL [Suspect]
     Indication: SUICIDE ATTEMPT
     Dosage: 37.5 MG + 325 MG,  7 DF, TOTAL
     Route: 048
     Dates: start: 20131108, end: 20131108

REACTIONS (3)
  - Confusional state [Recovered/Resolved]
  - Drug abuse [Recovered/Resolved]
  - Depressed level of consciousness [Recovered/Resolved]
